FAERS Safety Report 7938197-9 (Version None)
Quarter: 2011Q4

REPORT INFORMATION
  Report Type: 
  Country: None (occurrence: None)
  Receive Date: 20111123
  Receipt Date: 20110927
  Transmission Date: 20120403
  Serious: No
  Sender: FDA-Public Use
  Company Number: US-BRISTOL-MYERS SQUIBB COMPANY-16072167

PATIENT
  Age: 90 Year
  Sex: Female

DRUGS (7)
  1. GLYBURIDE [Concomitant]
  2. LISINOPRIL [Concomitant]
  3. PRAVASTATIN [Concomitant]
  4. ONGLYZA [Suspect]
  5. OXYBUTYNIN [Suspect]
  6. OXYBUTYNIN [Concomitant]
  7. CARVEDILOL [Concomitant]

REACTIONS (1)
  - DYSPEPSIA [None]
